FAERS Safety Report 8392934-0 (Version None)
Quarter: 2012Q2

REPORT INFORMATION
  Report Type: 
  Country: None (occurrence: None)
  Receive Date: 20120529
  Receipt Date: 20120524
  Transmission Date: 20120825
  Serious: No
  Sender: FDA-Public Use
  Company Number: US-PFIZER INC-2012126337

PATIENT
  Sex: Female
  Weight: 89.342 kg

DRUGS (6)
  1. LYRICA [Suspect]
     Indication: INTERVERTEBRAL DISC DEGENERATION
  2. CLONAZEPAM [Concomitant]
     Dosage: UNK
  3. LYRICA [Suspect]
     Indication: PAIN
     Dosage: UNK, 3X/DAY
     Route: 048
     Dates: start: 20090101
  4. SPIRIVA [Concomitant]
     Indication: CHRONIC OBSTRUCTIVE PULMONARY DISEASE
     Dosage: UNK
  5. ALBUTEROL [Concomitant]
     Indication: CHRONIC OBSTRUCTIVE PULMONARY DISEASE
     Dosage: UNK
  6. PAXIL [Concomitant]
     Dosage: UNK

REACTIONS (2)
  - SOMNOLENCE [None]
  - FATIGUE [None]
